FAERS Safety Report 13599645 (Version 2)
Quarter: 2017Q2

REPORT INFORMATION
  Report Type: Report from Study
  Country: AU (occurrence: AU)
  Receive Date: 20170531
  Receipt Date: 20170620
  Transmission Date: 20170830
  Serious: Yes (Other)
  Sender: FDA-Public Use
  Company Number: AU-ROCHE-1940978

PATIENT
  Age: 51 Year
  Sex: Male

DRUGS (3)
  1. ACTEMRA [Suspect]
     Active Substance: TOCILIZUMAB
     Indication: RHEUMATOID ARTHRITIS
     Dosage: ONGOING
     Route: 042
     Dates: start: 20130115
  2. FAMVIR (AUSTRALIA) [Concomitant]
     Dosage: FAMVIR 500 MG/BD (TWICE A DAY)?FOR 15 DAYS.
     Route: 065
  3. ACTEMRA [Suspect]
     Active Substance: TOCILIZUMAB
     Dosage: ONGOING
     Route: 042

REACTIONS (5)
  - Arthropod bite [Unknown]
  - Infection [Unknown]
  - Neutropenia [Unknown]
  - Blood cholesterol increased [Unknown]
  - Rash [Recovering/Resolving]

NARRATIVE: CASE EVENT DATE: 20170515
